FAERS Safety Report 6722935-7 (Version None)
Quarter: 2010Q2

REPORT INFORMATION
  Report Type: 
  Country: None (occurrence: None)
  Receive Date: 20100513
  Receipt Date: 20100504
  Transmission Date: 20101027
  Serious: Yes (Hospitalization)
  Sender: FDA-Public Use
  Company Number: US-BIOGENIDEC-2010BI014901

PATIENT
  Age: 56 Year
  Sex: Male

DRUGS (2)
  1. TYSABRI [Suspect]
     Indication: MULTIPLE SCLEROSIS
     Route: 042
     Dates: start: 20080820, end: 20090209
  2. TYSABRI [Suspect]
     Route: 042
     Dates: start: 20090929

REACTIONS (1)
  - CHANGE OF BOWEL HABIT [None]
